FAERS Safety Report 4618636-1 (Version None)
Quarter: 2005Q1

REPORT INFORMATION
  Report Type: 
  Country: None (occurrence: None)
  Receive Date: 20050323
  Receipt Date: 20050308
  Transmission Date: 20050727
  Serious: Yes (Disabling)
  Sender: FDA-Public Use
  Company Number: 8009330

PATIENT
  Sex: Male

DRUGS (3)
  1. KEPPRA [Suspect]
     Dosage: 1000 MG 2/D PO
     Route: 048
     Dates: start: 20040101
  2. TEGRETOL [Concomitant]
  3. PAXIL [Concomitant]

REACTIONS (4)
  - ABASIA [None]
  - DIZZINESS [None]
  - DYSPNOEA [None]
  - PAIN IN EXTREMITY [None]
